FAERS Safety Report 7626410-7 (Version None)
Quarter: 2011Q3

REPORT INFORMATION
  Report Type: 
  Country: None (occurrence: None)
  Receive Date: 20110714
  Receipt Date: 20110629
  Transmission Date: 20111222
  Serious: Yes (Death)
  Sender: FDA-Public Use
  Company Number: 2011-235

PATIENT
  Age: 59 Year
  Sex: Male
  Weight: 125 kg

DRUGS (18)
  1. MAGNESIUM OXIDE [Concomitant]
  2. METFORMIN HCL [Concomitant]
  3. RISPERDAL CONSTA [Concomitant]
  4. FENTANYL [Concomitant]
  5. NOVOLOG [Concomitant]
  6. LAMICTAL [Concomitant]
  7. ZOCOR [Concomitant]
  8. LANTUS [Concomitant]
  9. LASIX [Concomitant]
  10. NAPHAZOLINE HCL [Concomitant]
  11. PEPCID [Concomitant]
  12. SYNTHROID [Concomitant]
  13. LYRICA [Concomitant]
  14. FAZACLO ODT [Suspect]
     Indication: SUICIDAL IDEATION
     Dosage: 150 MG, QD, ORAL
     Route: 048
     Dates: start: 20110327, end: 20110331
  15. FAZACLO ODT [Suspect]
     Indication: BIPOLAR DISORDER
     Dosage: 150 MG, QD, ORAL
     Route: 048
     Dates: start: 20110327, end: 20110331
  16. FAZACLO ODT [Suspect]
     Indication: DEPRESSION
     Dosage: 150 MG, QD, ORAL
     Route: 048
     Dates: start: 20110327, end: 20110331
  17. FAZACLO ODT [Suspect]
     Indication: PSYCHOTIC DISORDER
     Dosage: 150 MG, QD, ORAL
     Route: 048
     Dates: start: 20110327, end: 20110331
  18. NEURONTIN [Concomitant]

REACTIONS (3)
  - PULMONARY EMBOLISM [None]
  - CARDIAC ARREST [None]
  - BRONCHOPNEUMONIA [None]
